FAERS Safety Report 4932808-8 (Version None)
Quarter: 2006Q1

REPORT INFORMATION
  Report Type: 
  Country: None (occurrence: None)
  Receive Date: 20060306
  Receipt Date: 20060221
  Transmission Date: 20060701
  Serious: Yes (Death, Hospitalization)
  Sender: FDA-Public Use
  Company Number: FR-ABBOTT-06P-056-0325636-00

PATIENT
  Age: 45 Year
  Sex: Female

DRUGS (4)
  1. DEPAKOTE [Suspect]
     Indication: BIPOLAR I DISORDER
     Dates: start: 20051101, end: 20051101
  2. DEPAKOTE [Suspect]
     Route: 048
     Dates: end: 20051101
  3. LOXAPINE SUCCINATE [Suspect]
     Indication: BIPOLAR I DISORDER
     Dates: start: 20051101, end: 20051101
  4. LOXAPINE SUCCINATE [Suspect]
     Route: 048
     Dates: end: 20051101

REACTIONS (4)
  - INTENTIONAL OVERDOSE [None]
  - LACTIC ACIDOSIS [None]
  - PANCREATITIS ACUTE [None]
  - SUICIDE ATTEMPT [None]
